FAERS Safety Report 23967466 (Version 7)
Quarter: 2024Q4

REPORT INFORMATION
  Report Type: Spontaneous
  Country: US (occurrence: US)
  Receive Date: 20240612
  Receipt Date: 20241216
  Transmission Date: 20250115
  Serious: Yes (Other)
  Sender: BAYER HEALTHCARE PHARMACEUTICALS INC.
  Company Number: US-BAYER-2024A082969

PATIENT
  Age: 43 Year
  Sex: Male

DRUGS (8)
  1. JIVI [Suspect]
     Active Substance: DAMOCTOCOG ALFA PEGOL
     Indication: Factor VIII deficiency
     Dosage: 3000 U, OW
     Route: 042
     Dates: start: 202307
  2. JIVI [Suspect]
     Active Substance: DAMOCTOCOG ALFA PEGOL
     Indication: Factor VIII deficiency
     Dosage: 3000 IU, EVERY 24-48 HOURS AS NEEDED FOR BREAKTHROUGH BLEEDING
     Dates: start: 202307
  3. JIVI [Suspect]
     Active Substance: DAMOCTOCOG ALFA PEGOL
     Indication: Factor VIII deficiency
     Dosage: 2000 IU, EVERY WEEK / PRN
     Route: 042
     Dates: start: 202407
  4. JIVI [Suspect]
     Active Substance: DAMOCTOCOG ALFA PEGOL
     Indication: Factor VIII deficiency
     Dosage: 1000 IU,EVERY WEEK / PRN
     Route: 042
     Dates: start: 202307
  5. JIVI [Suspect]
     Active Substance: DAMOCTOCOG ALFA PEGOL
     Indication: Factor VIII deficiency
     Dosage: 1 DF
     Route: 042
     Dates: start: 20240814, end: 20240814
  6. JIVI [Suspect]
     Active Substance: DAMOCTOCOG ALFA PEGOL
     Indication: Factor VIII deficiency
     Dosage: 1 DF
     Route: 042
     Dates: start: 20240816, end: 20240816
  7. JIVI [Suspect]
     Active Substance: DAMOCTOCOG ALFA PEGOL
     Indication: Factor VIII deficiency
     Dosage: 3 DF
     Route: 042
     Dates: start: 20240918
  8. JIVI [Suspect]
     Active Substance: DAMOCTOCOG ALFA PEGOL
     Indication: Factor VIII deficiency
     Dosage: 3000 UNITS (2700-3300)
     Route: 042

REACTIONS (12)
  - Haemorrhage [None]
  - Haemorrhage [None]
  - Haemorrhage [None]
  - Haemarthrosis [None]
  - Swelling face [None]
  - Haemorrhage [None]
  - Paranasal sinus inflammation [None]
  - Sinusitis [None]
  - Haemarthrosis [None]
  - Fall [None]
  - Weight increased [None]
  - Weight decreased [None]

NARRATIVE: CASE EVENT DATE: 20240525
